FAERS Safety Report 5378956-2 (Version None)
Quarter: 2007Q3

REPORT INFORMATION
  Report Type: 
  Country: None (occurrence: None)
  Receive Date: 20070705
  Receipt Date: 20070627
  Transmission Date: 20080115
  Serious: Yes (Other)
  Sender: FDA-Public Use
  Company Number: US-AMGEN-STX227023

PATIENT
  Sex: Female
  Weight: 92.2 kg

DRUGS (3)
  1. ENBREL [Suspect]
     Indication: RHEUMATOID ARTHRITIS
     Route: 058
     Dates: start: 20030211
  2. METHOTREXATE [Suspect]
     Dates: start: 19950101
  3. ARAVA [Suspect]
     Dates: start: 20000101, end: 20070508

REACTIONS (1)
  - HEPATIC ENZYME INCREASED [None]
